FAERS Safety Report 10976709 (Version 1)
Quarter: 2015Q1

REPORT INFORMATION
  Report Type: Spontaneous
  Country: US (occurrence: None)
  Receive Date: 20150226
  Receipt Date: 20150226
  Transmission Date: 20150721
  Serious: Yes (Other)
  Sender: FDA-Public Use
  Company Number: TPA2013A07474

PATIENT
  Age: 87 Year
  Sex: Male
  Weight: 77.1 kg

DRUGS (8)
  1. METFORMIN [Concomitant]
     Active Substance: METFORMIN HYDROCHLORIDE
  2. HUMALOG [Concomitant]
     Active Substance: INSULIN LISPRO
  3. GLUCOTROL [Concomitant]
     Active Substance: GLIPIZIDE
  4. LEVEMIR [Concomitant]
     Active Substance: INSULIN DETEMIR
  5. JANUVIA [Concomitant]
     Active Substance: SITAGLIPTIN PHOSPHATE
  6. NOVOLOG [Concomitant]
     Active Substance: INSULIN ASPART
  7. ACTOS [Suspect]
     Active Substance: PIOGLITAZONE HYDROCHLORIDE
     Indication: TYPE 2 DIABETES MELLITUS
     Route: 048
     Dates: start: 200702, end: 200910
  8. AVANDIA (ROSIGLITAZONE MALEATE) [Concomitant]

REACTIONS (1)
  - Bladder cancer [None]

NARRATIVE: CASE EVENT DATE: 20090530
